FAERS Safety Report 12322622 (Version 3)
Quarter: 2016Q2

REPORT INFORMATION
  Report Type: Spontaneous
  Country: US (occurrence: US)
  Receive Date: 20160502
  Receipt Date: 20160622
  Transmission Date: 20160815
  Serious: No
  Sender: FDA-Public Use
  Company Number: US-PFIZER INC-2016219215

PATIENT
  Age: 62 Year
  Sex: Male

DRUGS (11)
  1. LANTUS [Concomitant]
     Active Substance: INSULIN GLARGINE
     Dosage: UNK (100U/ML)
     Dates: start: 2010
  2. LYRICA [Suspect]
     Active Substance: PREGABALIN
     Indication: DIABETIC NEUROPATHY
     Dosage: 150 MG, 2X/DAY (IN A.M. AND P.M)
     Route: 048
     Dates: start: 2008
  3. SIMVASTATIN. [Concomitant]
     Active Substance: SIMVASTATIN
     Dosage: 40 MG, UNK
     Dates: start: 2009
  4. LYRICA [Suspect]
     Active Substance: PREGABALIN
     Indication: PAIN
  5. LEVOTHYROXINE. [Concomitant]
     Active Substance: LEVOTHYROXINE
     Dosage: 25 UG, UNK
     Dates: start: 2016
  6. OMEPRAZOLE. [Concomitant]
     Active Substance: OMEPRAZOLE
     Dosage: 20 MG, UNK
     Dates: start: 2006
  7. LOSARTAN. [Concomitant]
     Active Substance: LOSARTAN
     Dosage: 25 MG, UNK
     Dates: start: 2012
  8. NOVOLOG [Concomitant]
     Active Substance: INSULIN ASPART
     Dosage: UNK (100 UNIT/ML)
     Dates: start: 2014
  9. INVOKANA [Concomitant]
     Active Substance: CANAGLIFLOZIN
     Dosage: 300 MG, UNK
     Dates: start: 2013
  10. METFORMIN [Concomitant]
     Active Substance: METFORMIN HYDROCHLORIDE
     Dosage: 1000 MG, UNK
     Dates: start: 2010
  11. METOPROLOL TARTRATE. [Concomitant]
     Active Substance: METOPROLOL TARTRATE
     Dosage: 50 MG, UNK
     Dates: start: 2012

REACTIONS (1)
  - Burning sensation [Recovered/Resolved]

NARRATIVE: CASE EVENT DATE: 2008
